FAERS Safety Report 9274847 (Version 1)
Quarter: 2013Q2

REPORT INFORMATION
  Report Type: Spontaneous
  Country: IL (occurrence: IL)
  Receive Date: 20130507
  Receipt Date: 20130507
  Transmission Date: 20140414
  Serious: Yes (Hospitalization)
  Sender: FDA-Public Use
  Company Number: IL-AMGEN-ISRSP2013030854

PATIENT
  Age: 48 Year
  Sex: Female

DRUGS (3)
  1. NEULASTIM [Suspect]
     Indication: PROPHYLAXIS
     Dosage: UNK
     Route: 065
  2. ADRIAMYCIN                         /00330901/ [Concomitant]
     Indication: BREAST CANCER
     Dosage: UNK UNK, Q3WK
     Dates: start: 20130212
  3. CYTOXAN [Concomitant]
     Indication: BREAST CANCER
     Dosage: UNK UNK, Q3WK
     Dates: start: 20130212

REACTIONS (1)
  - Febrile neutropenia [Unknown]
